FAERS Safety Report 23903716 (Version 1)
Quarter: 2024Q2

REPORT INFORMATION
  Report Type: Spontaneous
  Country: US (occurrence: US)
  Receive Date: 20240527
  Receipt Date: 20240527
  Transmission Date: 20240715
  Serious: No
  Sender: FDA-Public Use
  Company Number: US-002147023-NVSC2024US107555

PATIENT
  Age: 7 Month
  Sex: Male

DRUGS (2)
  1. MEKINIST [Suspect]
     Active Substance: TRAMETINIB DIMETHYL SULFOXIDE
     Indication: Hypertrophy
     Dosage: 0.125 MG, Q3W
     Route: 065
  2. MEKINIST [Suspect]
     Active Substance: TRAMETINIB DIMETHYL SULFOXIDE
     Indication: Cardiomyopathy
     Dosage: 0.5 MG
     Route: 065

REACTIONS (1)
  - Product use complaint [Unknown]
